FAERS Safety Report 5853357-9 (Version None)
Quarter: 2008Q3

REPORT INFORMATION
  Report Type: 
  Country: None (occurrence: None)
  Receive Date: 20080820
  Receipt Date: 20070426
  Transmission Date: 20090109
  Serious: Yes (Hospitalization)
  Sender: FDA-Public Use
  Company Number: US023925

PATIENT
  Age: 76 Year
  Sex: Male
  Weight: 77 kg

DRUGS (7)
  1. TRISENOX [Suspect]
     Indication: MYELODYSPLASTIC SYNDROME
     Dosage: INTRAVENOUS DRIP
     Route: 041
     Dates: start: 20070208, end: 20070417
  2. MAG 2 [Concomitant]
  3. CALCIUM SANDOZ [Concomitant]
  4. ASPIRIN [Concomitant]
  5. GLIBOMET [Concomitant]
  6. OMEPRAZOLE [Concomitant]
  7. HUMALOG [Concomitant]

REACTIONS (10)
  - ACUTE PROMYELOCYTIC LEUKAEMIA DIFFERENTIATION SYNDROME [None]
  - ATRIAL FIBRILLATION [None]
  - ATRIAL FLUTTER [None]
  - CARDIAC FAILURE CONGESTIVE [None]
  - DYSPNOEA [None]
  - LEFT VENTRICULAR HYPERTROPHY [None]
  - LUNG CONSOLIDATION [None]
  - MITRAL VALVE INCOMPETENCE [None]
  - PERICARDIAL EFFUSION [None]
  - PLEURAL EFFUSION [None]
